FAERS Safety Report 20748483 (Version 25)
Quarter: 2024Q2

REPORT INFORMATION
  Report Type: Spontaneous
  Country: CA (occurrence: CA)
  Receive Date: 20220426
  Receipt Date: 20240419
  Transmission Date: 20240715
  Serious: Yes (Hospitalization, Other)
  Sender: FDA-Public Use
  Company Number: CA-CELLTRION INC.-2022CA005092

PATIENT

DRUGS (25)
  1. INFLECTRA [Suspect]
     Active Substance: INFLIXIMAB-DYYB
     Indication: Colitis ulcerative
     Dosage: 1 DF, WEEK 0 DOSE - RECEIVED IN HOSPITAL
     Route: 042
     Dates: start: 20220405, end: 20220405
  2. INFLECTRA [Suspect]
     Active Substance: INFLIXIMAB-DYYB
     Dosage: 1100 MG (SUPPOSED TO RECEIVE 10 MG/KG), WEEKS 2 AND 6, THEN EVERY 8 WEEKS
     Route: 042
     Dates: start: 20220524
  3. INFLECTRA [Suspect]
     Active Substance: INFLIXIMAB-DYYB
     Dosage: 1100 MG (SUPPOSED TO RECEIVE 10 MG/KG) WEEKS 2 AND 6, THEN EVERY 8 WEEKS
     Route: 042
     Dates: start: 20220606
  4. INFLECTRA [Suspect]
     Active Substance: INFLIXIMAB-DYYB
     Dosage: 10 MG/KG, WEEKS 2 AND 6, THEN EVERY 8 WEEKS
     Route: 042
     Dates: start: 20220714
  5. INFLECTRA [Suspect]
     Active Substance: INFLIXIMAB-DYYB
     Dosage: 10 MG/KG,WEEKS 2 AND 6, THEN EVERY 8 WEEKS
     Route: 042
     Dates: start: 20220908
  6. INFLECTRA [Suspect]
     Active Substance: INFLIXIMAB-DYYB
     Dosage: 1200 MG (SUPPOSED TO RECEIVE 10 MG/KG)
     Route: 042
     Dates: start: 20221103
  7. INFLECTRA [Suspect]
     Active Substance: INFLIXIMAB-DYYB
     Dosage: 10 MG/KG, 1 STAT DOSE THEN Q6WEEKS
     Route: 042
     Dates: start: 20221208
  8. INFLECTRA [Suspect]
     Active Substance: INFLIXIMAB-DYYB
     Dosage: 10 MG/KG, 1 STAT DOSE THEN Q6WEEKS
     Route: 042
     Dates: start: 20230117
  9. INFLECTRA [Suspect]
     Active Substance: INFLIXIMAB-DYYB
     Dosage: 10MG/KG, EVERY 4 WEEKS
     Route: 042
     Dates: start: 20230214
  10. INFLECTRA [Suspect]
     Active Substance: INFLIXIMAB-DYYB
     Dosage: 10 MG/KG (1300 MG) EVERY 4 WEEKS
     Route: 042
     Dates: start: 20230313
  11. INFLECTRA [Suspect]
     Active Substance: INFLIXIMAB-DYYB
     Dosage: 1300 MG (10MG/KG) EVERY 4 WEEKS
     Route: 042
     Dates: start: 20230412
  12. INFLECTRA [Suspect]
     Active Substance: INFLIXIMAB-DYYB
     Dosage: 1190 MG, AFTER 8 WEEKS
     Route: 042
     Dates: start: 20230607
  13. INFLECTRA [Suspect]
     Active Substance: INFLIXIMAB-DYYB
     Dosage: 1100 MG (10MG/KG), Q4 WEEKS
     Route: 042
     Dates: start: 20230706
  14. INFLECTRA [Suspect]
     Active Substance: INFLIXIMAB-DYYB
     Dosage: 1100 MG AFTER 4 WEEKS
     Route: 042
     Dates: start: 20230802
  15. INFLECTRA [Suspect]
     Active Substance: INFLIXIMAB-DYYB
     Dosage: 10 MG/KG EVERY 4 WEEKS
     Route: 042
     Dates: start: 20231122
  16. INFLECTRA [Suspect]
     Active Substance: INFLIXIMAB-DYYB
     Dosage: 10 MG/KG EVERY 4 WEEKS
     Route: 042
     Dates: start: 20240116
  17. INFLECTRA [Suspect]
     Active Substance: INFLIXIMAB-DYYB
     Dosage: 10 MG/KG (810MG) EVERY 4 WEEKS
     Route: 042
     Dates: start: 20240214
  18. INFLECTRA [Suspect]
     Active Substance: INFLIXIMAB-DYYB
     Dosage: 10 MG/KG, EVERY 4 WEEKS
     Route: 042
     Dates: start: 20240314
  19. CORTISONE [Concomitant]
     Active Substance: CORTISONE
     Dosage: UNK
  20. PANTOPRAZOLE SODIUM [Concomitant]
     Active Substance: PANTOPRAZOLE SODIUM
     Dosage: 1 DF, DOSAGE NOT AVAILABLE
     Route: 065
  21. PENTASA [Concomitant]
     Active Substance: MESALAMINE
     Dosage: 1 G, 2X/DAY
     Dates: start: 202009
  22. PENTASA [Concomitant]
     Active Substance: MESALAMINE
     Dosage: 1 G, 2X/DAY
     Route: 065
  23. PREDNISONE [Concomitant]
     Active Substance: PREDNISONE
     Dosage: 40 MG, 1X/DAY
     Dates: start: 202009
  24. PREDNISONE [Concomitant]
     Active Substance: PREDNISONE
     Dosage: 40 MG, 1X/DAY
     Route: 065
  25. PREDNISONE [Concomitant]
     Active Substance: PREDNISONE
     Dosage: 10 MG

REACTIONS (16)
  - Renal failure [Unknown]
  - Dehydration [Unknown]
  - Condition aggravated [Not Recovered/Not Resolved]
  - Weight increased [Unknown]
  - Metabolic disorder [Recovering/Resolving]
  - Drug level decreased [Unknown]
  - Drug level above therapeutic [Unknown]
  - Groin pain [Not Recovered/Not Resolved]
  - Gastrointestinal disorder [Recovering/Resolving]
  - Herpes zoster [Recovered/Resolved]
  - Swelling [Not Recovered/Not Resolved]
  - Erythema [Not Recovered/Not Resolved]
  - Pruritus [Not Recovered/Not Resolved]
  - Off label use [Unknown]
  - Off label use [Unknown]
  - Intentional product use issue [Unknown]

NARRATIVE: CASE EVENT DATE: 20220101
